FAERS Safety Report 16242295 (Version 1)
Quarter: 2019Q2

REPORT INFORMATION
  Report Type: Spontaneous
  Country: FR (occurrence: FR)
  Receive Date: 20190426
  Receipt Date: 20190426
  Transmission Date: 20190711
  Serious: Yes (Other)
  Sender: FDA-Public Use
  Company Number: FR-ACCORD-116920

PATIENT
  Age: 69 Year
  Sex: Female
  Weight: 60 kg

DRUGS (6)
  1. PACLITAXEL  AHCL [Concomitant]
     Active Substance: PACLITAXEL
     Route: 042
     Dates: start: 20181226, end: 20181226
  2. CARBOPLATIN ACCORD [Suspect]
     Active Substance: CARBOPLATIN
     Indication: NEOPLASM MALIGNANT
     Dosage: STRENGTH : 10 MG / ML
     Route: 042
     Dates: start: 20181226, end: 20181226
  3. AZANTAC [Suspect]
     Active Substance: RANITIDINE HYDROCHLORIDE
     Indication: PRODUCT USED FOR UNKNOWN INDICATION
     Dosage: STRENGTH : 50 MG/2 ML
     Route: 042
  4. EMEND [Concomitant]
     Active Substance: APREPITANT
     Route: 048
     Dates: start: 20181226, end: 20181226
  5. ONDANSETRON [Concomitant]
     Active Substance: ONDANSETRON
     Dosage: STRENGTH : 2 MG/ML
     Route: 042
     Dates: start: 20181226, end: 20181226
  6. ONDANSETRON (CHLORHYDRATE D^) DIHYDRATE [Concomitant]
     Route: 042
     Dates: start: 20181226, end: 20181226

REACTIONS (2)
  - Anaphylactoid reaction [Recovered/Resolved]
  - Anaphylactic reaction [Recovered/Resolved]

NARRATIVE: CASE EVENT DATE: 20181226
